FAERS Safety Report 10981457 (Version 1)
Quarter: 2015Q1

REPORT INFORMATION
  Report Type: Spontaneous
  Country: US (occurrence: None)
  Receive Date: 20150227
  Receipt Date: 20150227
  Transmission Date: 20150721
  Serious: Yes (Other)
  Sender: FDA-Public Use
  Company Number: LMI-2014-00445

PATIENT
  Age: 67 Year
  Sex: Male
  Weight: 80 kg

DRUGS (2)
  1. DEFINITY [Suspect]
     Active Substance: PERFLUTREN
     Indication: STRESS ECHOCARDIOGRAM
     Dosage: (2 ML DEFINITY DILUTED IN 8 ML NORMAL SALINE ) (2.5 ML, 1 IN 1 D)
     Route: 040
     Dates: start: 20141003, end: 20141003
  2. DEFINITY [Suspect]
     Active Substance: PERFLUTREN
     Indication: STRESS ECHOCARDIOGRAM
     Dosage: (2 ML DEFINITY DILUTED IN 8 ML NORMAL SALINE) (3 ML, 1 IN 1 D)
     Route: 040
     Dates: start: 20141003, end: 20141003

REACTIONS (7)
  - Feeling abnormal [None]
  - Dyspnoea [None]
  - Eye swelling [None]
  - Swollen tongue [None]
  - Oedema mouth [None]
  - Ocular hyperaemia [None]
  - Lip swelling [None]

NARRATIVE: CASE EVENT DATE: 20141003
